FAERS Safety Report 22661692 (Version 1)
Quarter: 2023Q2

REPORT INFORMATION
  Report Type: Spontaneous
  Country: JP (occurrence: JP)
  Receive Date: 20230630
  Receipt Date: 20230630
  Transmission Date: 20230722
  Serious: Yes (Death)
  Sender: FDA-Public Use
  Company Number: JP-PFIZER INC-202300233104

PATIENT

DRUGS (3)
  1. EXEMESTANE [Suspect]
     Active Substance: EXEMESTANE
     Indication: Breast cancer recurrent
     Dosage: UNK
  2. EVEROLIMUS [Suspect]
     Active Substance: EVEROLIMUS
     Indication: Breast cancer recurrent
     Dosage: UNK
  3. ERIBULIN [Suspect]
     Active Substance: ERIBULIN
     Indication: Breast cancer recurrent
     Dosage: UNK

REACTIONS (1)
  - Death [Fatal]
